FAERS Safety Report 14393663 (Version 1)
Quarter: 2018Q1

REPORT INFORMATION
  Report Type: Spontaneous
  Country: US (occurrence: US)
  Receive Date: 20180115
  Receipt Date: 20180115
  Transmission Date: 20180509
  Serious: Yes (Other)
  Sender: FDA-Public Use
  Company Number: None

PATIENT
  Age: 69 Year
  Sex: Female
  Weight: 89.06 kg

DRUGS (17)
  1. VITAMIN B12 [Concomitant]
     Active Substance: CYANOCOBALAMIN
  2. BACLOFEN. [Concomitant]
     Active Substance: BACLOFEN
  3. PROCHLORPERAZINE. [Concomitant]
     Active Substance: PROCHLORPERAZINE
  4. IBRANCE [Suspect]
     Active Substance: PALBOCICLIB
     Indication: BREAST CANCER
     Route: 048
     Dates: start: 20171212, end: 20180115
  5. ASPIRIN. [Concomitant]
     Active Substance: ASPIRIN
  6. EXCEDRIN MIGRAINE [Concomitant]
     Active Substance: ACETAMINOPHEN\ASPIRIN\CAFFEINE
  7. FASLODEX [Concomitant]
     Active Substance: FULVESTRANT
  8. ARTHROTEC [Concomitant]
     Active Substance: DICLOFENAC SODIUM\MISOPROSTOL
  9. CELEXA [Concomitant]
     Active Substance: CITALOPRAM HYDROBROMIDE
  10. VITAMIN D2 [Concomitant]
     Active Substance: ERGOCALCIFEROL
  11. FISH OIL + D3 [Concomitant]
  12. MULTIVITAMIN [Concomitant]
     Active Substance: VITAMINS
  13. VERAPAMIL [Concomitant]
     Active Substance: VERAPAMIL HYDROCHLORIDE
  14. ZYRTEC [Concomitant]
     Active Substance: CETIRIZINE HYDROCHLORIDE
  15. AMBIEN [Concomitant]
     Active Substance: ZOLPIDEM TARTRATE
  16. PROMETHAZINE [Concomitant]
     Active Substance: PROMETHAZINE\PROMETHAZINE HYDROCHLORIDE
  17. CRESTOR [Concomitant]
     Active Substance: ROSUVASTATIN CALCIUM

REACTIONS (1)
  - Disease progression [None]
